FAERS Safety Report 6660462-6 (Version None)
Quarter: 2010Q1

REPORT INFORMATION
  Report Type: 
  Country: None (occurrence: None)
  Receive Date: 20100331
  Receipt Date: 20100324
  Transmission Date: 20100710
  Serious: Yes (Other)
  Sender: FDA-Public Use
  Company Number: DE-NOVOPROD-302451

PATIENT
  Sex: Male
  Weight: 94 kg

DRUGS (7)
  1. LIRAGLUTIDE FLEXPEN [Suspect]
     Indication: TYPE 2 DIABETES MELLITUS
     Dosage: 1.8 MG, QD
     Route: 058
     Dates: start: 20090331, end: 20091222
  2. METFORMIN (GLUCOPHAGE) [Concomitant]
     Indication: TYPE 2 DIABETES MELLITUS
     Dosage: 2000 MG, QD
     Route: 048
     Dates: start: 20020305
  3. RAMIPRIL [Concomitant]
     Dosage: UNK
     Route: 048
     Dates: start: 20060602
  4. SIMVAHEXAL [Concomitant]
     Dosage: 20 MG, QD
     Route: 048
     Dates: start: 20060713
  5. TORSEMIDE [Concomitant]
     Dosage: 10 MG, QD
     Route: 048
     Dates: start: 20081013
  6. MICARDIS [Concomitant]
     Dosage: 80 MG, QD
     Route: 048
     Dates: start: 20060906
  7. NITRENDIPIN [Concomitant]
     Dosage: 20 MG, QD
     Route: 048
     Dates: start: 20090331

REACTIONS (1)
  - RENAL FAILURE [None]
